FAERS Safety Report 11644094 (Version 1)
Quarter: 2015Q4

REPORT INFORMATION
  Report Type: Spontaneous
  Country: US (occurrence: US)
  Receive Date: 20151020
  Receipt Date: 20151020
  Transmission Date: 20160304
  Serious: No
  Sender: FDA-Public Use
  Company Number: US-009507513-1510USA007905

PATIENT
  Sex: Female

DRUGS (1)
  1. ZONTIVITY [Suspect]
     Active Substance: VORAPAXAR SULFATE
     Indication: PERIPHERAL ARTERIAL OCCLUSIVE DISEASE
     Dosage: 2.08 MG, ONCE DAILY
     Route: 048

REACTIONS (1)
  - Epistaxis [Recovered/Resolved]
